FAERS Safety Report 14755897 (Version 10)
Quarter: 2019Q3

REPORT INFORMATION
  Report Type: Spontaneous
  Country: US (occurrence: US)
  Receive Date: 20180413
  Receipt Date: 20190701
  Transmission Date: 20191004
  Serious: Yes (Death, Hospitalization, Other)
  Sender: FDA-Public Use
  Company Number: US-PFIZER INC-2018150686

PATIENT
  Age: 65 Year
  Sex: Female
  Weight: 101 kg

DRUGS (6)
  1. AMLODIPINE BESYLATE. [Concomitant]
     Active Substance: AMLODIPINE BESYLATE
     Dosage: 10 MG, UNK
     Route: 048
  2. LETROZOLE. [Concomitant]
     Active Substance: LETROZOLE
     Dosage: 2.5 MG, DAILY
     Route: 048
     Dates: start: 201709
  3. HYDROCODONE/ACETAMINOPHEN [Concomitant]
     Active Substance: ACETAMINOPHEN\HYDROCODONE
     Indication: PAIN
     Dosage: UNK, AS NEEDED,[HYDROCODONE BITARTRATE: 5MG/PARACETAMOL:325MG]
     Route: 048
  4. IBRANCE [Suspect]
     Active Substance: PALBOCICLIB
     Indication: BREAST CANCER METASTATIC
     Dosage: 75 MG, CYCLIC (DAILY 1-21, EVERY 28 DAYS)
     Route: 048
     Dates: start: 201709
  5. TRIAMTERENE AND HYDROCHLOROTHIAZID [Concomitant]
     Active Substance: HYDROCHLOROTHIAZIDE\TRIAMTERENE
     Dosage: HYDROCHLOROTHIAZIDE: 25 MG/TRIAMTERENE: 37.5 MG
     Route: 048
  6. VITAMIN D [Concomitant]
     Active Substance: VITAMIN D NOS
     Dosage: 50000 IU, UNK
     Route: 048

REACTIONS (15)
  - Dizziness [Unknown]
  - Visual impairment [Unknown]
  - Vitreous floaters [Unknown]
  - Sneezing [Unknown]
  - Head discomfort [Unknown]
  - Malaise [Not Recovered/Not Resolved]
  - Blood pressure decreased [Unknown]
  - Intentional product misuse [Unknown]
  - Weight increased [Unknown]
  - Dizziness postural [Unknown]
  - Balance disorder [Unknown]
  - Neoplasm progression [Fatal]
  - Pneumonia [Unknown]
  - Cough [Unknown]
  - Feeling abnormal [Unknown]
